FAERS Safety Report 18212779 (Version 1)
Quarter: 2020Q3

REPORT INFORMATION
  Report Type: Spontaneous
  Country: US (occurrence: US)
  Receive Date: 20200830
  Receipt Date: 20200830
  Transmission Date: 20201103
  Serious: Yes (Hospitalization)
  Sender: FDA-Public Use
  Company Number: None

PATIENT
  Age: 69 Year
  Sex: Female

DRUGS (1)
  1. AVONEX PEN [Suspect]
     Active Substance: INTERFERON BETA-1A
     Indication: MULTIPLE SCLEROSIS
     Dosage: OTHER DOSE:30MCG/.5M ONCE WEEKLY INTRAMUSCULARLY?
     Route: 030
     Dates: start: 201902

REACTIONS (2)
  - Asthenia [None]
  - Haemoglobin decreased [None]

NARRATIVE: CASE EVENT DATE: 20200826
